FAERS Safety Report 24079460 (Version 5)
Quarter: 2024Q3

REPORT INFORMATION
  Report Type: Spontaneous
  Country: US (occurrence: US)
  Receive Date: 20240711
  Receipt Date: 20240912
  Transmission Date: 20241017
  Serious: Yes (Death, Hospitalization)
  Sender: RIGEL PHARMACEUTICALS
  Company Number: US-RIGEL Pharmaceuticals, INC-20240700015

PATIENT
  Sex: Male

DRUGS (1)
  1. REZLIDHIA [Suspect]
     Active Substance: OLUTASIDENIB
     Indication: Acute myeloid leukaemia refractory
     Dosage: 150 MG, BID
     Route: 048
     Dates: start: 20240508, end: 20240712

REACTIONS (12)
  - Viral infection [Fatal]
  - Pneumonia [Fatal]
  - Pulmonary oedema [Fatal]
  - Acute respiratory distress syndrome [Fatal]
  - Chronic obstructive pulmonary disease [Fatal]
  - Cardiac failure congestive [Fatal]
  - Acute coronary syndrome [Fatal]
  - Anaemia [Fatal]
  - Sepsis [Fatal]
  - Product dose omission issue [Unknown]
  - Constipation [Recovered/Resolved]
  - Hospitalisation [Unknown]

NARRATIVE: CASE EVENT DATE: 20240101
